FAERS Safety Report 5145192-4 (Version None)
Quarter: 2006Q4

REPORT INFORMATION
  Report Type: 
  Country: None (occurrence: None)
  Receive Date: 20061107
  Receipt Date: 20061024
  Transmission Date: 20070319
  Serious: Yes (Other)
  Sender: FDA-Public Use
  Company Number: NO-BAYER-200614982GDS

PATIENT
  Sex: Male

DRUGS (3)
  1. CIPROFLOXACIN [Suspect]
     Indication: PROSTATITIS
     Route: 048
     Dates: start: 20011016, end: 20011101
  2. AZITROMAX [Suspect]
     Indication: PROSTATITIS
     Route: 048
     Dates: start: 20011116, end: 20011201
  3. CARDURAN CR [Suspect]
     Indication: PROSTATITIS
     Route: 048
     Dates: start: 20011116, end: 20011201

REACTIONS (34)
  - ABDOMINAL DISCOMFORT [None]
  - ABDOMINAL PAIN [None]
  - ABNORMAL DREAMS [None]
  - ALCOHOL INTOLERANCE [None]
  - ALOPECIA [None]
  - AMNESIA [None]
  - ANAL HAEMORRHAGE [None]
  - ARRHYTHMIA [None]
  - ASTHENIA [None]
  - CHRONIC FATIGUE SYNDROME [None]
  - DECREASED ACTIVITY [None]
  - DEPRESSED MOOD [None]
  - DIARRHOEA [None]
  - DISEASE RECURRENCE [None]
  - DISTURBANCE IN ATTENTION [None]
  - DIZZINESS [None]
  - EPISTAXIS [None]
  - FAECAL INCONTINENCE [None]
  - FATIGUE [None]
  - FLATULENCE [None]
  - FOOD INTOLERANCE [None]
  - HEADACHE [None]
  - MUSCLE SPASMS [None]
  - MUSCLE TWITCHING [None]
  - NASOPHARYNGITIS [None]
  - NAUSEA [None]
  - NIGHT SWEATS [None]
  - PALPITATIONS [None]
  - POLLAKIURIA [None]
  - PROSTATITIS [None]
  - SLEEP DISORDER [None]
  - TINNITUS [None]
  - TREMOR [None]
  - VISION BLURRED [None]
